FAERS Safety Report 21963639 (Version 1)
Quarter: 2023Q1

REPORT INFORMATION
  Report Type: Spontaneous
  Country: US (occurrence: US)
  Receive Date: 20230207
  Receipt Date: 20230207
  Transmission Date: 20230417
  Serious: No
  Sender: FDA-Public Use
  Company Number: US-SA-SAC20230207000073

PATIENT
  Age: 58 Year
  Sex: Male

DRUGS (25)
  1. AUBAGIO [Suspect]
     Active Substance: TERIFLUNOMIDE
     Indication: Multiple sclerosis
     Dosage: 7 MG, QD
     Route: 048
     Dates: start: 20221229
  2. AMLODIPINE BESYLATE [Concomitant]
     Active Substance: AMLODIPINE BESYLATE
     Dosage: 200MG
  3. CELEBREX [Concomitant]
     Active Substance: CELECOXIB
     Dosage: 10MG
  4. FISH OIL;VITAMIN D NOS [Concomitant]
     Dosage: 500MG
  5. NAPROXEN [Concomitant]
     Active Substance: NAPROXEN
  6. TRAMADOL [Concomitant]
     Active Substance: TRAMADOL
  7. CYANOCOBALAMIN [Concomitant]
     Active Substance: CYANOCOBALAMIN
  8. VITAMIN D3 [Concomitant]
     Active Substance: CHOLECALCIFEROL
  9. ROSUVASTATIN CALCIUM [Concomitant]
     Active Substance: ROSUVASTATIN CALCIUM
  10. NEOMYCIN [Concomitant]
     Active Substance: NEOMYCIN
  11. KETOTIFEN FUMARATE [Concomitant]
     Active Substance: KETOTIFEN FUMARATE
  12. FIBER [Concomitant]
  13. CIPROFLOXACIN HYDROCHLORIDE [Concomitant]
     Active Substance: CIPROFLOXACIN HYDROCHLORIDE
  14. AZITHROMYCIN [Concomitant]
     Active Substance: AZITHROMYCIN
  15. ALFUZOSIN [Concomitant]
     Active Substance: ALFUZOSIN
  16. DICYCLOMINE HYDROCHLORIDE [Concomitant]
     Active Substance: DICYCLOMINE HYDROCHLORIDE
  17. OMEPRAZOLE [Concomitant]
     Active Substance: OMEPRAZOLE
  18. CLOBETASOL [Concomitant]
     Active Substance: CLOBETASOL
  19. DIETARY SUPPLEMENT\HERBALS\MILK THISTLE [Concomitant]
     Active Substance: DIETARY SUPPLEMENT\HERBALS\MILK THISTLE
  20. DIAZEPAM [Concomitant]
     Active Substance: DIAZEPAM
  21. ILEVRO [Concomitant]
     Active Substance: NEPAFENAC
  22. LOTEMAX [Concomitant]
     Active Substance: LOTEPREDNOL ETABONATE
  23. METHOCARBAMOL [Concomitant]
     Active Substance: METHOCARBAMOL
  24. SILDENAFIL CITRATE [Concomitant]
     Active Substance: SILDENAFIL CITRATE
  25. ASPIRIN [Concomitant]
     Active Substance: ASPIRIN

REACTIONS (3)
  - Constipation [Not Recovered/Not Resolved]
  - Head discomfort [Recovering/Resolving]
  - Hypertension [Unknown]

NARRATIVE: CASE EVENT DATE: 20221201
